FAERS Safety Report 15495310 (Version 2)
Quarter: 2019Q1

REPORT INFORMATION
  Report Type: Report from Study
  Country: None (occurrence: FR)
  Receive Date: 20181013
  Receipt Date: 20190222
  Transmission Date: 20190417
  Serious: Yes (Hospitalization, Other)
  Sender: FDA-Public Use
  Company Number: FR-ABBVIE-18K-056-2518150-00

PATIENT
  Age: 14 Year
  Sex: Male
  Weight: 26.7 kg

DRUGS (4)
  1. HUMIRA [Suspect]
     Active Substance: ADALIMUMAB
     Indication: CROHN^S DISEASE
     Route: 058
     Dates: start: 20180912, end: 20180912
  2. HUMIRA [Suspect]
     Active Substance: ADALIMUMAB
     Indication: ILEAL STENOSIS
     Route: 058
     Dates: start: 20180830, end: 20180830
  3. HUMIRA [Suspect]
     Active Substance: ADALIMUMAB
     Route: 058
     Dates: start: 2018
  4. HUMIRA [Suspect]
     Active Substance: ADALIMUMAB
     Route: 058

REACTIONS (2)
  - Hepatocellular injury [Not Recovered/Not Resolved]
  - Crohn^s disease [Unknown]

NARRATIVE: CASE EVENT DATE: 20180912
